FAERS Safety Report 6371024-2 (Version None)
Quarter: 2009Q3

REPORT INFORMATION
  Report Type: 
  Country: None (occurrence: None)
  Receive Date: 20090923
  Receipt Date: 20090915
  Transmission Date: 20100115
  Serious: Yes (Other)
  Sender: FDA-Public Use
  Company Number: ES-JNJFOC-20090905199

PATIENT
  Age: 73 Year
  Sex: Male

DRUGS (2)
  1. REMICADE [Suspect]
     Indication: COLITIS ULCERATIVE
     Dosage: 5 INFUSIONS
     Route: 042
     Dates: start: 20081101
  2. AZATHIOPRINE [Suspect]
     Indication: DRUG USE FOR UNKNOWN INDICATION

REACTIONS (1)
  - HODGKIN'S DISEASE STAGE IV [None]
